FAERS Safety Report 14247289 (Version 1)
Quarter: 2017Q4

REPORT INFORMATION
  Report Type: Spontaneous
  Country: US (occurrence: US)
  Receive Date: 20171204
  Receipt Date: 20171204
  Transmission Date: 20180321
  Serious: No
  Sender: FDA-Public Use
  Company Number: US-ALLERGAN-1717487US

PATIENT
  Age: 91 Year
  Sex: Male

DRUGS (1)
  1. NAMENDA [Suspect]
     Active Substance: MEMANTINE HYDROCHLORIDE
     Indication: DEMENTIA
     Dosage: 10 MG, UNK
     Route: 048
     Dates: start: 2015, end: 201702

REACTIONS (5)
  - General physical health deterioration [Not Recovered/Not Resolved]
  - Pneumonia [Unknown]
  - Drug dose omission [Unknown]
  - Drug ineffective [Unknown]
  - Urinary tract infection [Unknown]

NARRATIVE: CASE EVENT DATE: 201702
